FAERS Safety Report 24068573 (Version 2)
Quarter: 2024Q3

REPORT INFORMATION
  Report Type: Spontaneous
  Country: AU (occurrence: AU)
  Receive Date: 20240710
  Receipt Date: 20240710
  Transmission Date: 20241017
  Serious: No
  Sender: ROCHE
  Company Number: AU-ROCHE-3517343

PATIENT
  Age: 82 Year
  Sex: Female

DRUGS (3)
  1. VABYSMO [Suspect]
     Active Substance: FARICIMAB\FARICIMAB-SVOA
     Indication: Age-related macular degeneration
     Dosage: LEFT EYE
     Route: 065
     Dates: start: 20230329
  2. VABYSMO [Suspect]
     Active Substance: FARICIMAB\FARICIMAB-SVOA
     Dosage: RIGHT EYE
     Route: 065
     Dates: start: 20230705
  3. EYLEA [Concomitant]
     Active Substance: AFLIBERCEPT

REACTIONS (1)
  - Iritis [Recovered/Resolved]

NARRATIVE: CASE EVENT DATE: 20231025
